FAERS Safety Report 9432079 (Version 1)
Quarter: 2013Q3

REPORT INFORMATION
  Report Type: Spontaneous
  Country: US (occurrence: US)
  Receive Date: 20130731
  Receipt Date: 20130731
  Transmission Date: 20140515
  Serious: No
  Sender: FDA-Public Use
  Company Number: US-PFIZER INC-2013221484

PATIENT
  Sex: Male

DRUGS (1)
  1. INLYTA [Suspect]
     Dosage: 5 MG, UNK
     Dates: start: 20130525

REACTIONS (3)
  - Fatigue [Unknown]
  - Diarrhoea [Unknown]
  - Dysphonia [Unknown]
